FAERS Safety Report 8490650-8 (Version None)
Quarter: 2012Q3

REPORT INFORMATION
  Report Type: 
  Country: None (occurrence: None)
  Receive Date: 20120705
  Receipt Date: 20120627
  Transmission Date: 20120928
  Serious: Yes (Death)
  Sender: FDA-Public Use
  Company Number: LB-CELGENEUS-093-21880-12060687

PATIENT
  Sex: Female

DRUGS (10)
  1. INNOHEP [Concomitant]
     Route: 065
     Dates: start: 20111201
  2. ZOLOFT [Concomitant]
     Route: 065
     Dates: start: 20120301
  3. REVLIMID [Suspect]
     Indication: MULTIPLE MYELOMA
     Dosage: 15 MILLIGRAM
     Route: 048
     Dates: start: 20120320, end: 20120426
  4. ZOMETA [Concomitant]
     Route: 065
     Dates: start: 20100801
  5. LYRICA [Concomitant]
     Route: 065
     Dates: start: 20120101
  6. CIPROLEX [Concomitant]
     Route: 065
     Dates: start: 20120101
  7. SINTROM [Concomitant]
     Route: 065
     Dates: start: 20111201
  8. HYOMAX [Concomitant]
     Route: 065
     Dates: start: 20120101
  9. MORPHINE [Concomitant]
     Route: 065
     Dates: start: 20120301
  10. LASIX [Concomitant]
     Route: 065
     Dates: start: 20120101

REACTIONS (1)
  - MULTIPLE MYELOMA [None]
